FAERS Safety Report 6423114-3 (Version None)
Quarter: 2009Q4

REPORT INFORMATION
  Report Type: 
  Country: None (occurrence: None)
  Receive Date: 20091102
  Receipt Date: 20091026
  Transmission Date: 20100525
  Serious: Yes (Hospitalization)
  Sender: FDA-Public Use
  Company Number: JP-ASTRAZENECA-2009SE23215

PATIENT
  Age: 42 Year
  Sex: Male

DRUGS (7)
  1. ECARD [Suspect]
     Indication: HYPERTENSION
     Route: 048
     Dates: start: 20090923, end: 20091006
  2. CRESTOR [Suspect]
     Route: 048
  3. OLMETEC [Suspect]
     Route: 048
  4. CALBLOCK [Suspect]
     Route: 048
  5. CONIEL [Suspect]
     Route: 048
  6. SELARA [Suspect]
     Route: 048
  7. CALONAL [Concomitant]
     Route: 065

REACTIONS (1)
  - HEPATIC FUNCTION ABNORMAL [None]
